FAERS Safety Report 6358175-3 (Version None)
Quarter: 2009Q3

REPORT INFORMATION
  Report Type: 
  Country: None (occurrence: None)
  Receive Date: 20090916
  Receipt Date: 20090915
  Transmission Date: 20100115
  Serious: Yes (Life-Threatening)
  Sender: FDA-Public Use
  Company Number: GB-BRISTOL-MYERS SQUIBB COMPANY-14779318

PATIENT
  Age: 38 Year
  Sex: Male

DRUGS (2)
  1. ARIPIPRAZOLE [Suspect]
     Indication: SCHIZOPHRENIA
     Route: 048
     Dates: start: 20081201, end: 20090826
  2. DEPIXOL [Concomitant]
     Indication: SCHIZOPHRENIA
     Route: 030
     Dates: start: 20040101

REACTIONS (1)
  - LARYNGOSPASM [None]
